FAERS Safety Report 4337990-1 (Version None)
Quarter: 2004Q2

REPORT INFORMATION
  Report Type: 
  Country: None (occurrence: None)
  Receive Date: 20040407
  Receipt Date: 20040319
  Transmission Date: 20050107
  Serious: Yes (Life-Threatening, Hospitalization, Disabling)
  Sender: FDA-Public Use
  Company Number: JP_031202330

PATIENT
  Age: 76 Year
  Sex: Female
  Weight: 45 kg

DRUGS (6)
  1. GEMZAR [Suspect]
     Indication: PANCREATIC CARCINOMA
     Dosage: 600 MG OTHER
     Route: 050
     Dates: start: 20031009, end: 20031126
  2. FAMOTIDINE [Concomitant]
  3. FOIPAN (CAMOSTAT MESILATE) [Concomitant]
  4. BETAMETHASONE [Concomitant]
  5. MAGNESIUM OXIDE [Concomitant]
  6. NAUZELIN  (DOMPERIDONE) [Concomitant]

REACTIONS (3)
  - BLOOD BICARBONATE DECREASED [None]
  - CHRONIC OBSTRUCTIVE AIRWAYS DISEASE [None]
  - INTERSTITIAL LUNG DISEASE [None]
